FAERS Safety Report 9260293 (Version 1)
Quarter: 2013Q2

REPORT INFORMATION
  Report Type: Spontaneous
  Country: MY (occurrence: MY)
  Receive Date: 20130429
  Receipt Date: 20130429
  Transmission Date: 20140414
  Serious: Yes (Death)
  Sender: FDA-Public Use
  Company Number: PHHY2012MY070441

PATIENT
  Sex: Female

DRUGS (8)
  1. TASIGNA [Suspect]
     Indication: CHRONIC MYELOID LEUKAEMIA
     Dosage: UNK
     Dates: start: 20120312, end: 20120704
  2. TRANEXAMIC ACID [Concomitant]
  3. ITRACONAZOLE [Concomitant]
  4. RHINOCORT (BECLOMETASONE DIPROPIONATE) [Concomitant]
  5. OMEPRAZOLE [Concomitant]
  6. ACICLOVIR [Concomitant]
  7. IMIPENEM [Concomitant]
  8. VANCOMYCIN [Concomitant]

REACTIONS (2)
  - Neutropenic sepsis [Fatal]
  - Blast crisis in myelogenous leukaemia [Fatal]
